FAERS Safety Report 25549177 (Version 3)
Quarter: 2025Q3

REPORT INFORMATION
  Report Type: Spontaneous
  Country: US (occurrence: US)
  Receive Date: 20250714
  Receipt Date: 20250930
  Transmission Date: 20251021
  Serious: No
  Sender: BLUEPRINT MEDICINES
  Company Number: US-Blueprint Medicines Corporation-2025-AER-01505

PATIENT
  Age: 75 Year
  Sex: Male

DRUGS (12)
  1. AYVAKIT [Suspect]
     Active Substance: AVAPRITINIB
     Indication: Systemic mastocytosis
     Route: 065
     Dates: start: 20250613
  2. AYVAKIT [Suspect]
     Active Substance: AVAPRITINIB
     Route: 048
     Dates: start: 20250613
  3. Alive Mens Gummy [Concomitant]
     Indication: Product used for unknown indication
     Route: 065
  4. Atovaquone-Proguanil HCl [Concomitant]
     Indication: Product used for unknown indication
     Route: 065
  5. B Complex (Folic Acid) [Concomitant]
     Indication: Product used for unknown indication
     Route: 065
  6. CALCIUM\MAGNESIUM [Concomitant]
     Active Substance: CALCIUM\MAGNESIUM
     Indication: Product used for unknown indication
     Route: 065
  7. VITAMIN D3 [Concomitant]
     Active Substance: CHOLECALCIFEROL
     Indication: Product used for unknown indication
     Route: 065
  8. NPLATE [Concomitant]
     Active Substance: ROMIPLOSTIM
     Indication: Product used for unknown indication
     Route: 065
  9. PROMACTA [Concomitant]
     Active Substance: ELTROMBOPAG OLAMINE
     Indication: Product used for unknown indication
     Route: 065
  10. SILDENAFIL [Concomitant]
     Active Substance: SILDENAFIL
     Indication: Product used for unknown indication
     Route: 065
  11. Valcylovir [Concomitant]
     Indication: Product used for unknown indication
     Route: 065
  12. VITAMIN B COMPLEX [Concomitant]
     Active Substance: CYANOCOBALAMIN\DEXPANTHENOL\NIACINAMIDE\PYRIDOXINE HYDROCHLORIDE\RIBOFLAVIN 5^-PHOSPHATE SODIUM\THIA
     Indication: Product used for unknown indication
     Route: 065

REACTIONS (3)
  - Computerised tomogram kidney abnormal [Recovered/Resolved]
  - Platelet count decreased [Not Recovered/Not Resolved]
  - Renal mass [Not Recovered/Not Resolved]
